FAERS Safety Report 6216727-5 (Version None)
Quarter: 2009Q2

REPORT INFORMATION
  Report Type: 
  Country: None (occurrence: None)
  Receive Date: 20090603
  Receipt Date: 20090603
  Transmission Date: 20091009
  Serious: Yes (Other)
  Sender: FDA-Public Use
  Company Number: None

PATIENT
  Age: 35 Year
  Sex: Female
  Weight: 72.5755 kg

DRUGS (5)
  1. EFAVIRENZ [Suspect]
     Indication: HIV INFECTION
     Dosage: 600 MG QD ORAL
     Route: 048
     Dates: start: 20051208, end: 20090329
  2. EMTRICITABINE/TENOVIR DISOPROXIL FUMARATE/PLACEBO [Suspect]
     Indication: HIV INFECTION
     Dosage: 500 MG QD ORAL
     Route: 048
     Dates: start: 20051208, end: 20090329
  3. ABACAVIR SULFATE/LAMIVUDINE/PLACEBO [Suspect]
     Indication: HIV INFECTION
     Dosage: 900 MG QD ORAL
     Route: 048
     Dates: start: 20051208, end: 20090329
  4. KALETRA [Concomitant]
  5. COMBIVIR [Concomitant]

REACTIONS (3)
  - ABORTION SPONTANEOUS [None]
  - DRUG EXPOSURE DURING PREGNANCY [None]
  - PREGNANCY [None]
